FAERS Safety Report 17813297 (Version 2)
Quarter: 2020Q2

REPORT INFORMATION
  Report Type: Report from Study
  Country: US (occurrence: US)
  Receive Date: 20200521
  Receipt Date: 20200530
  Transmission Date: 20200714
  Serious: Yes (Death, Hospitalization, Other)
  Sender: FDA-Public Use
  Company Number: US-MYLANLABS-2020M1050692

PATIENT
  Age: 57 Year
  Sex: Male
  Weight: 75.1 kg

DRUGS (27)
  1. METHYLPREDNISOLONE. [Suspect]
     Active Substance: METHYLPREDNISOLONE
     Indication: GRAFT VERSUS HOST DISEASE
     Dosage: 80 MILLIGRAM, BID
     Route: 048
     Dates: start: 20181012, end: 20181013
  2. METHYLPREDNISOLONE. [Suspect]
     Active Substance: METHYLPREDNISOLONE
     Dosage: 70 MILLIGRAM, BID
     Route: 048
     Dates: start: 20181014, end: 20181015
  3. PREDNISONE. [Suspect]
     Active Substance: PREDNISONE
     Indication: GRAFT VERSUS HOST DISEASE
     Dosage: 25 MILLIGRAM, BID
     Route: 048
     Dates: start: 20181129, end: 20181130
  4. METHYLPREDNISOLONE. [Suspect]
     Active Substance: METHYLPREDNISOLONE
     Indication: GRAFT VERSUS HOST DISEASE
     Dosage: 20 MILLIGRAM, BID
     Route: 065
     Dates: start: 20181127, end: 20181127
  5. PREDNISONE. [Suspect]
     Active Substance: PREDNISONE
     Dosage: 25 MILLIGRAM, BID
     Route: 048
     Dates: start: 20181128
  6. PREDNISONE. [Suspect]
     Active Substance: PREDNISONE
     Dosage: 45 MILLIGRAM, QD
     Route: 048
     Dates: start: 20181201, end: 20181204
  7. PREDNISONE. [Suspect]
     Active Substance: PREDNISONE
     Dosage: 35 MILLIGRAM, QD (20MG AM 15MG PM)
     Route: 048
     Dates: start: 20181211, end: 20181213
  8. INCB039110 [Suspect]
     Active Substance: ITACITINIB
     Indication: ACUTE GRAFT VERSUS HOST DISEASE
     Dosage: 200 MILLIGRAM, QD
     Route: 048
     Dates: start: 20181012, end: 20181206
  9. METHYLPREDNISOLONE. [Suspect]
     Active Substance: METHYLPREDNISOLONE
     Dosage: 60 MILLIGRAM, BID
     Route: 048
     Dates: start: 20181016, end: 20181017
  10. METHYLPREDNISOLONE. [Suspect]
     Active Substance: METHYLPREDNISOLONE
     Dosage: 20 MILLIGRAM, QD (ONCE DAILY AM)
     Route: 065
     Dates: start: 20181128, end: 20181128
  11. PENTAMIDINE [Concomitant]
     Active Substance: PENTAMIDINE
     Dosage: UNK
     Dates: start: 20181207, end: 20181207
  12. PREDNISONE. [Suspect]
     Active Substance: PREDNISONE
     Dosage: 20 MILLIGRAM, BID
     Route: 048
     Dates: start: 20181206, end: 20181210
  13. PREDNISONE. [Suspect]
     Active Substance: PREDNISONE
     Dosage: 25 MILLIGRAM, PM (ONCE DAILY IN PM)
     Route: 048
     Dates: start: 20181128, end: 20181128
  14. METHYLPREDNISOLONE. [Suspect]
     Active Substance: METHYLPREDNISOLONE
     Dosage: 30 MILLIGRAM, BID
     Route: 048
     Dates: start: 20181109, end: 20181113
  15. METHYLPREDNISOLONE. [Suspect]
     Active Substance: METHYLPREDNISOLONE
     Dosage: 90 MILLIGRAM, QD (50MG AM, 40 MG PM)
     Route: 048
     Dates: start: 20181022, end: 20181022
  16. PREDNISONE. [Suspect]
     Active Substance: PREDNISONE
     Dosage: 15 MILLIGRAM, BID
     Route: 048
     Dates: start: 20181215, end: 20181216
  17. INCB039110 [Suspect]
     Active Substance: ITACITINIB
     Dosage: 100 MILLIGRAM, QD
     Route: 048
     Dates: start: 20181207, end: 20181217
  18. METHYLPREDNISOLONE. [Suspect]
     Active Substance: METHYLPREDNISOLONE
     Dosage: 50 MILLIGRAM, BID
     Route: 048
     Dates: start: 20181018, end: 20181021
  19. METHYLPREDNISOLONE. [Suspect]
     Active Substance: METHYLPREDNISOLONE
     Dosage: 75 MILLIGRAM, QD (40MG AM 35 MG PM)
     Route: 048
     Dates: start: 20181102, end: 20181102
  20. METHYLPREDNISOLONE. [Suspect]
     Active Substance: METHYLPREDNISOLONE
     Dosage: 45 MILLIGRAM, TOTAL
     Route: 048
     Dates: start: 20181121, end: 20181126
  21. METHYLPREDNISOLONE. [Suspect]
     Active Substance: METHYLPREDNISOLONE
     Dosage: 55 MILLIGRAM, QD (30MG AM, 25MG PM)
     Route: 048
     Dates: start: 20181114, end: 20181114
  22. CIPROFLOXACIN. [Concomitant]
     Active Substance: CIPROFLOXACIN
     Dosage: UNK
     Dates: start: 20181102
  23. PREDNISONE. [Suspect]
     Active Substance: PREDNISONE
     Dosage: 30 MILLIGRAM, QD (20MG AM 10MG PM)
     Route: 048
     Dates: start: 20181214, end: 20181214
  24. PREDNISONE. [Suspect]
     Active Substance: PREDNISONE
     Dosage: 20 MILLIGRAM, QD
     Route: 048
     Dates: start: 20181205, end: 20181205
  25. METHYLPREDNISOLONE. [Suspect]
     Active Substance: METHYLPREDNISOLONE
     Dosage: 35 MILLIGRAM, BID
     Route: 065
     Dates: start: 20181103, end: 20181108
  26. PREDNISONE. [Suspect]
     Active Substance: PREDNISONE
     Dosage: 15 MILLIGRAM, QD
     Route: 048
     Dates: start: 20181217, end: 20181217
  27. METHYLPREDNISOLONE. [Suspect]
     Active Substance: METHYLPREDNISOLONE
     Dosage: 40 MILLIGRAM, BID
     Route: 048
     Dates: start: 20181023, end: 20181101

REACTIONS (7)
  - Hypotension [Recovering/Resolving]
  - Septic shock [Fatal]
  - Dyspnoea [Not Recovered/Not Resolved]
  - Thrombocytopenia [Unknown]
  - Cough [Unknown]
  - Gastrointestinal disorder [Unknown]
  - Nasal congestion [Unknown]

NARRATIVE: CASE EVENT DATE: 20181207
